FAERS Safety Report 9236928 (Version 3)
Quarter: 2013Q3

REPORT INFORMATION
  Report Type: Spontaneous
  Country: FR (occurrence: FR)
  Receive Date: 20130417
  Receipt Date: 20130801
  Transmission Date: 20140515
  Serious: Yes (Hospitalization)
  Sender: FDA-Public Use
  Company Number: PHHY2013FR035649

PATIENT
  Age: 91 Year
  Sex: Male

DRUGS (18)
  1. LOXEN LP [Suspect]
     Indication: HYPERTENSION
     Dosage: 50 MG, UNK
     Route: 048
     Dates: end: 20120622
  2. LOXEN [Suspect]
     Dosage: UNK UKN, UNK
  3. ESIDREX [Suspect]
     Indication: HYPERTENSION
     Dosage: 25 MG, QD
     Route: 048
     Dates: start: 20120630, end: 20120704
  4. TRIATEC [Suspect]
     Dosage: UNK UKN, UNK
     Route: 048
     Dates: end: 20120122
  5. PROFENID [Suspect]
     Dosage: UNK UKN, UNK
     Route: 048
     Dates: end: 20120622
  6. CORDARONE [Suspect]
     Indication: ARRHYTHMIA
     Dosage: 200 MG, QD
     Route: 048
     Dates: start: 20120619, end: 20120704
  7. APROVEL [Suspect]
     Indication: HYPERTENSION
     Dosage: 150 MG, QD
     Route: 048
     Dates: start: 20120630, end: 20120704
  8. EUPRESSYL [Suspect]
     Dosage: 60 MG, QD
     Route: 048
     Dates: start: 20120629, end: 20120704
  9. LERCAN [Suspect]
     Dosage: 10 MG, QD
     Route: 048
     Dates: start: 20120629, end: 20120704
  10. COAPROVEL [Suspect]
     Indication: HYPERTENSION
     Dosage: 1 DF (150 MG IRBE/12.5 HCT) QD
     Route: 048
     Dates: start: 20120623, end: 20120629
  11. MONOTILDIEM [Suspect]
     Indication: HYPERTENSION
     Dosage: 200 MG, QD
     Route: 048
     Dates: start: 20120623, end: 20120629
  12. KARDEGIC [Concomitant]
     Indication: CARDIOVASCULAR EVENT PROPHYLAXIS
     Dosage: 160 MG, QD
     Route: 048
     Dates: start: 20120619, end: 20120704
  13. KARDEGIC [Concomitant]
     Dosage: 75 MG, QD
     Route: 048
     Dates: start: 20120629
  14. PARIET [Concomitant]
     Dosage: 20 MG, QD
     Route: 048
     Dates: start: 20120618, end: 20120711
  15. MICRALAX [Concomitant]
     Indication: CONSTIPATION
     Dosage: 1 DF, QD
     Route: 054
     Dates: start: 20120620, end: 20120711
  16. FORLAX [Concomitant]
     Indication: CONSTIPATION
     Dosage: UNK
     Route: 048
     Dates: start: 20120629, end: 20120711
  17. TRANSIPEG//MACROGOL [Concomitant]
     Dosage: 5.9 G, BID
     Route: 048
     Dates: start: 20120620, end: 20120629
  18. EFFERALGAN CODEINE [Concomitant]
     Dosage: 1 G, QID
     Route: 048
     Dates: start: 20120618, end: 20120629

REACTIONS (1)
  - Renal failure [Recovering/Resolving]
